FAERS Safety Report 5328433-X (Version None)
Quarter: 2007Q2

REPORT INFORMATION
  Report Type: 
  Country: None (occurrence: None)
  Receive Date: 20070516
  Receipt Date: 20070516
  Transmission Date: 20071010
  Serious: Yes (Other)
  Sender: FDA-Public Use
  Company Number: None

PATIENT
  Sex: Female

DRUGS (2)
  1. REVLIMID [Suspect]
     Indication: LEIOMYOSARCOMA METASTATIC
     Dosage: 25MG DAILY 21D/28D PO
     Route: 048
  2. REVLIMID [Suspect]
     Indication: UTERINE LEIOMYOSARCOMA
     Dosage: 25MG DAILY 21D/28D PO
     Route: 048

REACTIONS (7)
  - DRY MOUTH [None]
  - DYSPNOEA EXERTIONAL [None]
  - FATIGUE [None]
  - PLATELET COUNT DECREASED [None]
  - TREMOR [None]
  - VISION BLURRED [None]
  - WHITE BLOOD CELL COUNT DECREASED [None]
